FAERS Safety Report 9560328 (Version 1)
Quarter: 2013Q3

REPORT INFORMATION
  Report Type: Spontaneous
  Country: FR (occurrence: FR)
  Receive Date: 20130927
  Receipt Date: 20130927
  Transmission Date: 20140515
  Serious: Yes (Life-Threatening, Hospitalization)
  Sender: FDA-Public Use
  Company Number: FR-BAYER-2013-111964

PATIENT
  Age: 53 Year
  Sex: Male

DRUGS (12)
  1. CIFLOX [Suspect]
     Indication: ANTIBIOTIC THERAPY
     Dosage: UNK
     Route: 065
     Dates: start: 20080430, end: 20080519
  2. VANCOMYCIN [Suspect]
     Indication: ANTIBIOTIC THERAPY
     Dosage: UNK
     Route: 042
     Dates: start: 20080430, end: 20080519
  3. VANCOMYCIN [Suspect]
     Indication: ANTIBIOTIC THERAPY
  4. AUGMENTIN [Suspect]
     Indication: LUNG DISORDER
     Dosage: UNK
     Route: 065
     Dates: start: 20080430, end: 20080506
  5. AUGMENTIN [Suspect]
     Indication: LUNG DISORDER
  6. TAZOCILLINE [Suspect]
     Indication: ANTIBIOTIC THERAPY
     Dosage: UNK
     Route: 042
     Dates: start: 20080430, end: 20080519
  7. TAZOCILLINE [Suspect]
     Indication: ANTIBIOTIC THERAPY
  8. TIENAM [Suspect]
     Indication: ANTIBIOTIC THERAPY
     Dosage: UNK
     Route: 065
     Dates: start: 20080523, end: 20080526
  9. TIENAM [Suspect]
     Indication: ANTIBIOTIC THERAPY
     Dosage: UNK
  10. ZYVOXID [Concomitant]
     Dosage: UNK
     Route: 065
     Dates: start: 20080523
  11. VALIUM [Concomitant]
     Indication: ALCOHOL WITHDRAWAL SYNDROME
     Dosage: UNK
     Route: 065
     Dates: start: 20080401
  12. OFLOCET [Concomitant]
     Indication: ANTIBIOTIC THERAPY
     Route: 065

REACTIONS (20)
  - Anuria [Not Recovered/Not Resolved]
  - Blood lactate dehydrogenase increased [Not Recovered/Not Resolved]
  - Body temperature increased [Not Recovered/Not Resolved]
  - Brain injury [Not Recovered/Not Resolved]
  - Bronchial obstruction [Not Recovered/Not Resolved]
  - Confusional state [Not Recovered/Not Resolved]
  - Drug reaction with eosinophilia and systemic symptoms [Not Recovered/Not Resolved]
  - Encephalopathy [Not Recovered/Not Resolved]
  - Eosinophilia [Not Recovered/Not Resolved]
  - General physical health deterioration [Not Recovered/Not Resolved]
  - Hypersensitivity [Not Recovered/Not Resolved]
  - Leukopenia [Not Recovered/Not Resolved]
  - Lung disorder [Not Recovered/Not Resolved]
  - Polyneuropathy [Not Recovered/Not Resolved]
  - Purpura [Not Recovered/Not Resolved]
  - Pyrexia [Not Recovered/Not Resolved]
  - Rash morbilliform [Not Recovered/Not Resolved]
  - Renal failure acute [Not Recovered/Not Resolved]
  - Renal tubular disorder [Not Recovered/Not Resolved]
  - Toxic skin eruption [Not Recovered/Not Resolved]
